FAERS Safety Report 10494265 (Version 1)
Quarter: 2014Q4

REPORT INFORMATION
  Report Type: Spontaneous
  Country: BR (occurrence: BR)
  Receive Date: 20141003
  Receipt Date: 20141003
  Transmission Date: 20150528
  Serious: Yes (Other)
  Sender: FDA-Public Use
  Company Number: BR-GLAXOSMITHKLINE-A1090753A

PATIENT
  Sex: Female
  Weight: 49 kg

DRUGS (7)
  1. PROPAFENONE HCL [Suspect]
     Active Substance: PROPAFENONE HYDROCHLORIDE
     Indication: ARRHYTHMIA
     Dosage: 300MG PER DAY
     Route: 048
  2. VITAMIN D [Concomitant]
     Active Substance: CHOLECALCIFEROL
  3. HIRUDOID [Concomitant]
     Active Substance: GLYCOSAMINOGLYCANS
  4. OMEGA 3 [Concomitant]
     Active Substance: OMEGA-3 FATTY ACIDS
  5. OLMETEC [Concomitant]
     Active Substance: OLMESARTAN MEDOXOMIL
  6. SYNTHROID [Suspect]
     Active Substance: LEVOTHYROXINE SODIUM
     Indication: THYROID DISORDER
     Dosage: 50MCG PER DAY
     Route: 048
  7. DAFLON [Concomitant]
     Active Substance: DIOSMIN\HESPERIDIN

REACTIONS (8)
  - Cerebrovascular accident [Recovered/Resolved]
  - Cerebral thrombosis [Unknown]
  - Influenza [Unknown]
  - Fatigue [Unknown]
  - Malaise [Unknown]
  - Blood pressure abnormal [Unknown]
  - Varicose vein [Unknown]
  - Crying [Unknown]
